FAERS Safety Report 15581072 (Version 1)
Quarter: 2018Q4

REPORT INFORMATION
  Report Type: Spontaneous
  Country: US (occurrence: US)
  Receive Date: 20181102
  Receipt Date: 20181102
  Transmission Date: 20190205
  Serious: No
  Sender: FDA-Public Use
  Company Number: US-PFIZER INC-2018441759

PATIENT
  Age: 66 Year
  Sex: Female
  Weight: 70.31 kg

DRUGS (1)
  1. PREMARIN [Suspect]
     Active Substance: ESTROGENS, CONJUGATED
     Indication: VAGINAL PESSARY INSERTION
     Dosage: 1 G, 1X/DAY (1GM OF CREAM INSERTED INTO THE VAGINA ONE TIME)
     Route: 067
     Dates: start: 20180917, end: 20180917

REACTIONS (3)
  - Pyrexia [Recovered/Resolved]
  - Vulvovaginal discomfort [Unknown]
  - Product use in unapproved indication [Unknown]

NARRATIVE: CASE EVENT DATE: 201809
